FAERS Safety Report 5196293-6 (Version None)
Quarter: 2007Q1

REPORT INFORMATION
  Report Type: 
  Country: None (occurrence: None)
  Receive Date: 20070102
  Receipt Date: 20061221
  Transmission Date: 20070707
  Serious: Yes (Other)
  Sender: FDA-Public Use
  Company Number: GB-PFIZER INC-2006155253

PATIENT
  Age: 11 Year
  Sex: Female
  Weight: 31.8 kg

DRUGS (3)
  1. PIROXICAM [Suspect]
     Indication: CHEST PAIN
  2. PIROXICAM [Suspect]
     Indication: ARTHRALGIA
  3. IBUPROFEN [Suspect]

REACTIONS (3)
  - CONTUSION [None]
  - EYE PAIN [None]
  - VISION BLURRED [None]
